FAERS Safety Report 9892132 (Version 1)
Quarter: 2014Q1

REPORT INFORMATION
  Report Type: Report from Study
  Country: BR (occurrence: BR)
  Receive Date: 20140212
  Receipt Date: 20140212
  Transmission Date: 20141002
  Serious: Yes (Hospitalization, Other)
  Sender: FDA-Public Use
  Company Number: PHHY2014BR016494

PATIENT
  Age: 74 Year
  Sex: Female

DRUGS (6)
  1. ONBREZ [Suspect]
     Indication: RESPIRATORY DISORDER
     Dosage: 150 UG, UNK
     Route: 055
  2. ONBREZ [Suspect]
     Dosage: 300 UG, UNK
  3. INFLUENZA VIRUS VACC SEASONAL INN [Suspect]
     Indication: IMMUNISATION
     Dosage: 1 DF
     Route: 065
  4. OXIMAX [Concomitant]
     Indication: RESPIRATORY DISORDER
     Dosage: UNK APPROXIMATELY 2 YEARS
  5. PREDSIM [Concomitant]
     Indication: FATIGUE
     Dosage: UNK (SHE STARTED THE TREATMENT WITH 10 AND AFTER STARTED THE TREATMENT WITH 5 AND AFTER DECREAS)
  6. SERETIDE [Concomitant]
     Indication: RESPIRATORY DISORDER
     Dosage: UNK APPROXIMATELY 3 YEARS

REACTIONS (3)
  - Respiratory disorder [Unknown]
  - Bronchiectasis [Unknown]
  - Secretion discharge [Unknown]
